FAERS Safety Report 9173427 (Version 1)
Quarter: 2013Q1

REPORT INFORMATION
  Report Type: Spontaneous
  Country: US (occurrence: None)
  Receive Date: 20130318
  Receipt Date: 20130318
  Transmission Date: 20140127
  Serious: Yes (Hospitalization)
  Sender: FDA-Public Use
  Company Number: ACO_34740_2013

PATIENT
  Age: 51 Year
  Sex: Male
  Weight: 113.4 kg

DRUGS (2)
  1. AMPYRA [Suspect]
     Indication: GAIT DISTURBANCE
     Dosage: 10 MG, Q 12 HRS, ORAL
     Route: 048
     Dates: start: 20120811
  2. COPAXONE (GLATIRAMER ACETATE) [Concomitant]

REACTIONS (5)
  - Hip fracture [None]
  - Dysuria [None]
  - Muscle spasms [None]
  - Fall [None]
  - Drug dose omission [None]
